FAERS Safety Report 6784343-2 (Version None)
Quarter: 2010Q2

REPORT INFORMATION
  Report Type: 
  Country: None (occurrence: None)
  Receive Date: 20100622
  Receipt Date: 20100611
  Transmission Date: 20101027
  Serious: Yes (Hospitalization)
  Sender: FDA-Public Use
  Company Number: US-MERCK-1006USA01780

PATIENT
  Age: 86 Year
  Sex: Female

DRUGS (2)
  1. COZAAR [Suspect]
     Indication: BLOOD PRESSURE
     Route: 048
     Dates: start: 20100101
  2. VIOXX [Concomitant]
     Route: 048

REACTIONS (3)
  - CARDIAC DISORDER [None]
  - DIZZINESS [None]
  - FATIGUE [None]
